FAERS Safety Report 19211286 (Version 1)
Quarter: 2021Q2

REPORT INFORMATION
  Report Type: Spontaneous
  Country: US (occurrence: US)
  Receive Date: 20210504
  Receipt Date: 20210504
  Transmission Date: 20210717
  Serious: No
  Sender: FDA-Public Use
  Company Number: US-RECORDATI RARE DISEASE INC.-2020002918

PATIENT

DRUGS (1)
  1. CARBAGLU [Suspect]
     Active Substance: CARGLUMIC ACID
     Indication: UREA CYCLE DISORDER
     Dosage: 200 MILLIGRAM, TID
     Dates: start: 20200331

REACTIONS (2)
  - Pharyngitis streptococcal [Unknown]
  - Lethargy [Unknown]

NARRATIVE: CASE EVENT DATE: 2020
